FAERS Safety Report 21384781 (Version 1)
Quarter: 2022Q3

REPORT INFORMATION
  Report Type: Spontaneous
  Country: US (occurrence: US)
  Receive Date: 20220928
  Receipt Date: 20220928
  Transmission Date: 20221027
  Serious: Yes (Other)
  Sender: FDA-Public Use
  Company Number: US-Melinta Therapeutics, LLC-US-MLNT-22-00074

PATIENT
  Age: 37 Year
  Sex: Male

DRUGS (2)
  1. ORBACTIV [Suspect]
     Active Substance: ORITAVANCIN
     Indication: Osteomyelitis acute
     Dosage: NOT PROVIDED.
     Route: 041
     Dates: start: 20220523, end: 20220523
  2. ORBACTIV [Suspect]
     Active Substance: ORITAVANCIN
     Indication: Bacterial infection

REACTIONS (7)
  - Anaphylactic reaction [Unknown]
  - Off label use [Unknown]
  - Dyspepsia [Unknown]
  - Paraesthesia oral [Unknown]
  - Nausea [Unknown]
  - Vomiting [Unknown]
  - Hot flush [Unknown]

NARRATIVE: CASE EVENT DATE: 20220523
